FAERS Safety Report 4604502-4 (Version None)
Quarter: 2005Q2

REPORT INFORMATION
  Report Type: 
  Country: None (occurrence: None)
  Receive Date: 20050217
  Receipt Date: 20041022
  Transmission Date: 20051028
  Serious: No
  Sender: FDA-Public Use
  Company Number: S04-USA-07069-01

PATIENT
  Age: 89 Year
  Sex: Female

DRUGS (10)
  1. NAMENDA [Suspect]
     Indication: DEMENTIA
     Dosage: 10 MG BID PO
     Route: 048
     Dates: start: 20041018
  2. NAMENDA [Suspect]
     Indication: DEMENTIA
     Dosage: 5 MG QD PO
     Route: 048
     Dates: start: 20040927, end: 20041003
  3. NAMENDA [Suspect]
     Indication: DEMENTIA
     Dosage: 5 MG BID PO
     Route: 048
     Dates: start: 20041004, end: 20041010
  4. NAMENDA [Suspect]
     Indication: DEMENTIA
     Dosage: 15 MG QD PO
     Route: 048
     Dates: start: 20041011, end: 20041017
  5. ARICEPT [Concomitant]
  6. PRINIVIL [Concomitant]
  7. PAXIL [Concomitant]
  8. MICRONASE [Concomitant]
  9. ZANTAC [Concomitant]
  10. CALCIUM GLUCONATE [Concomitant]

REACTIONS (2)
  - AGITATION [None]
  - CONFUSIONAL STATE [None]
